FAERS Safety Report 10257542 (Version 1)
Quarter: 2014Q2

REPORT INFORMATION
  Report Type: Spontaneous
  Country: US (occurrence: US)
  Receive Date: 20140625
  Receipt Date: 20140625
  Transmission Date: 20141212
  Serious: No
  Sender: FDA-Public Use
  Company Number: US-GLAXOSMITHKLINE-A1071666A

PATIENT
  Sex: Female

DRUGS (4)
  1. VERAMYST [Suspect]
     Indication: PRODUCT USED FOR UNKNOWN INDICATION
     Dosage: 27.5MCG UNKNOWN
     Route: 065
     Dates: start: 20140314
  2. ADVAIR [Concomitant]
  3. FLONASE [Concomitant]
  4. VENTOLIN HFA [Concomitant]

REACTIONS (2)
  - Nasal discomfort [Unknown]
  - Nasopharyngitis [Unknown]
